FAERS Safety Report 5261870-0 (Version None)
Quarter: 2007Q1

REPORT INFORMATION
  Report Type: 
  Country: None (occurrence: None)
  Receive Date: 20070310
  Receipt Date: 20070228
  Transmission Date: 20070707
  Serious: Yes (Other)
  Sender: FDA-Public Use
  Company Number: 2007UW01391

PATIENT
  Age: 24699 Day
  Sex: Male
  Weight: 88.6 kg

DRUGS (2)
  1. SEROQUEL [Suspect]
     Route: 048
     Dates: start: 20040206
  2. ZYPREXA [Suspect]
     Indication: ANXIETY
     Dates: start: 20020101

REACTIONS (3)
  - DIABETES MELLITUS NON-INSULIN-DEPENDENT [None]
  - RETINAL DETACHMENT [None]
  - WEIGHT INCREASED [None]
